FAERS Safety Report 11059957 (Version 1)
Quarter: 2015Q2

REPORT INFORMATION
  Report Type: Report from Study
  Country: FR (occurrence: FR)
  Receive Date: 20150423
  Receipt Date: 20150423
  Transmission Date: 20150821
  Serious: Yes (Hospitalization)
  Sender: FDA-Public Use
  Company Number: FR-009507513-1504FRA017654

PATIENT
  Age: 79 Year
  Sex: Male
  Weight: 88 kg

DRUGS (5)
  1. EMTRICITABINE [Suspect]
     Active Substance: EMTRICITABINE
     Indication: HIV INFECTION
     Dosage: 200 MG, QD
     Dates: start: 20150212
  2. OMEPRAZOLE. [Suspect]
     Active Substance: OMEPRAZOLE
     Indication: GASTROOESOPHAGEAL REFLUX DISEASE
     Dosage: 10 MG, QD
     Route: 048
     Dates: start: 20150311
  3. RALTEGRAVIR POTASSIUM [Suspect]
     Active Substance: RALTEGRAVIR POTASSIUM
     Indication: HIV INFECTION
     Dosage: 400 MG, BID
     Route: 048
     Dates: start: 20150212
  4. TENOFOVIR [Suspect]
     Active Substance: TENOFOVIR
     Indication: HIV INFECTION
     Dosage: 300 MG, QD
     Dates: start: 20150212
  5. GAVISCON (ALGINIC ACID (+) ALUMINUM HYDROXIDE (+) SODIUM BICARBONATE) [Suspect]
     Active Substance: ALGINIC ACID\ALUMINUM HYDROXIDE\SODIUM BICARBONATE
     Indication: GASTROOESOPHAGEAL REFLUX DISEASE
     Dosage: UNK
     Dates: start: 20150212

REACTIONS (4)
  - Hypoxia [None]
  - Cough [None]
  - Dyspnoea [None]
  - Cough [Recovered/Resolved with Sequelae]

NARRATIVE: CASE EVENT DATE: 20150323
